FAERS Safety Report 7973384-5 (Version None)
Quarter: 2011Q4

REPORT INFORMATION
  Report Type: 
  Country: None (occurrence: None)
  Receive Date: 20111213
  Receipt Date: 20110907
  Transmission Date: 20120403
  Serious: No
  Sender: FDA-Public Use
  Company Number: US-AMGEN-USASP2011045885

PATIENT
  Age: 67 Year
  Sex: Female

DRUGS (7)
  1. MULTIVITAMIN                       /00097801/ [Concomitant]
     Dosage: UNK
  2. NORVASC [Concomitant]
     Dosage: 1 MG, QD
  3. VITAMIN D [Concomitant]
     Dosage: UNK
  4. LANTUS [Concomitant]
     Dosage: UNK UNK, QD
  5. ARANESP [Suspect]
     Indication: ANAEMIA
     Dosage: 60 MUG, QWK
     Dates: start: 20110728
  6. SERTRALINE HYDROCHLORIDE [Concomitant]
     Dosage: 1 MG, QD
  7. LEVOTHYROXINE SODIUM [Concomitant]
     Dosage: 1 MG, QD

REACTIONS (3)
  - ERYTHEMA [None]
  - SKIN BURNING SENSATION [None]
  - RASH PRURITIC [None]
